FAERS Safety Report 6955163-0 (Version None)
Quarter: 2010Q3

REPORT INFORMATION
  Report Type: 
  Country: None (occurrence: None)
  Receive Date: 20100830
  Receipt Date: 20091208
  Transmission Date: 20110219
  Serious: Yes (Other)
  Sender: FDA-Public Use
  Company Number: US-SANOFI-AVENTIS-200918902US

PATIENT
  Age: 64 Year
  Sex: Male
  Weight: 192.3 kg

DRUGS (8)
  1. SOLOSTAR [Suspect]
     Dosage: DOSE:28 UNIT(S)
     Route: 058
     Dates: start: 20090601
  2. LANTUS [Suspect]
     Dosage: DOSE:28 UNIT(S)
     Route: 058
     Dates: start: 20090601
  3. METFORMIN [Concomitant]
  4. LISINOPRIL [Concomitant]
     Indication: HYPERTENSION
     Dosage: DOSE:20 UNIT(S)
  5. CARVEDILOL [Concomitant]
     Indication: HYPERTENSION
  6. HYDRALAZINE [Concomitant]
     Indication: HYPERTENSION
  7. SIMVASTATIN [Concomitant]
  8. NIASPAN [Concomitant]

REACTIONS (2)
  - CONVULSION [None]
  - HYPOGLYCAEMIC UNCONSCIOUSNESS [None]
